FAERS Safety Report 6591468-3 (Version None)
Quarter: 2010Q1

REPORT INFORMATION
  Report Type: 
  Country: None (occurrence: None)
  Receive Date: 20100219
  Receipt Date: 20100209
  Transmission Date: 20100710
  Serious: No
  Sender: FDA-Public Use
  Company Number: US-ELI_LILLY_AND_COMPANY-US201001001865

PATIENT
  Sex: Female

DRUGS (16)
  1. FORTEO [Suspect]
     Indication: OSTEOPOROSIS
     Dosage: 20 UG, DAILY (1/D)
     Route: 065
     Dates: start: 20090712
  2. ANTIHYPERTENSIVES [Concomitant]
     Indication: HYPERTENSION
     Dosage: UNK, UNKNOWN
     Route: 065
  3. COZAAR [Concomitant]
     Dosage: 50 MG, DAILY (1/D)
     Route: 065
  4. MOXILLIN /00249602/ [Concomitant]
     Dosage: 75 MG, DAILY (1/D)
     Route: 065
  5. MOXILLIN /00249602/ [Concomitant]
     Dosage: 50 MG, DAILY (1/D)
     Route: 065
  6. BABY ASPIRIN [Concomitant]
     Dosage: 81 MG, DAILY (1/D)
     Route: 065
  7. LOVAZA [Concomitant]
     Dosage: UNK, 3/D
     Route: 065
  8. PRAZINIL [Concomitant]
     Dosage: 200 MG, 2/D
     Route: 065
  9. FOLIC ACID [Concomitant]
     Dosage: 1 MG, DAILY (1/D)
     Route: 065
  10. METHOTREXATE [Concomitant]
     Dosage: 2.5 MG, 3/W
     Route: 065
  11. OSCAL [Concomitant]
     Dosage: 500 MG, 2/D
     Route: 065
  12. PRENATAL VITAMINS /01549301/ [Concomitant]
     Dosage: UNK, DAILY (1/D)
     Route: 065
  13. DETROL LA [Concomitant]
     Dosage: 4 MG, DAILY (1/D)
     Route: 065
  14. PREVACID [Concomitant]
     Dosage: 30 MG, 2/D
     Route: 065
  15. AMOXICILLIN AND CLAVULANATE POTASSIUM [Concomitant]
     Dosage: 5 MG, DAILY (1/D)
     Route: 065
  16. POTASSIUM [Concomitant]
     Dosage: UNK, UNKNOWN
     Route: 065

REACTIONS (11)
  - ABDOMINAL DISTENSION [None]
  - ABDOMINAL PAIN UPPER [None]
  - ADVERSE DRUG REACTION [None]
  - ANAL FISSURE [None]
  - BACK PAIN [None]
  - FALL [None]
  - MALAISE [None]
  - NAUSEA [None]
  - PAIN [None]
  - PERIORBITAL HAEMATOMA [None]
  - SURGERY [None]
